FAERS Safety Report 7825693-8 (Version None)
Quarter: 2011Q4

REPORT INFORMATION
  Report Type: 
  Country: None (occurrence: None)
  Receive Date: 20111019
  Receipt Date: 20111007
  Transmission Date: 20120403
  Serious: Yes (Other)
  Sender: FDA-Public Use
  Company Number: JP-AMGEN-JPNSP2011053130

PATIENT
  Age: 41 Year
  Sex: Female

DRUGS (5)
  1. OMEPRAZOLE [Concomitant]
     Route: 048
     Dates: start: 20070713, end: 20110927
  2. MEIACT [Concomitant]
     Route: 048
     Dates: start: 20110825, end: 20110829
  3. LOXONIN [Concomitant]
     Route: 048
     Dates: start: 20110825, end: 20110829
  4. INCREMIN [Concomitant]
     Route: 048
     Dates: start: 20110519, end: 20110927
  5. ROMIPLATE [Suspect]
     Indication: IDIOPATHIC THROMBOCYTOPENIC PURPURA
     Dosage: 250 MUG, QWK
     Route: 058
     Dates: start: 20110812, end: 20110909

REACTIONS (1)
  - ANAEMIA HAEMOLYTIC AUTOIMMUNE [None]
